FAERS Safety Report 9013265 (Version 1)
Quarter: 2013Q1

REPORT INFORMATION
  Report Type: Spontaneous
  Country: US (occurrence: None)
  Receive Date: 20130107
  Receipt Date: 20130107
  Transmission Date: 20140127
  Serious: Yes (Hospitalization)
  Sender: FDA-Public Use
  Company Number: None

PATIENT
  Age: 66 Year
  Sex: Female
  Weight: 80.29 kg

DRUGS (2)
  1. AZITHROMYCIN [Suspect]
     Indication: SINUSITIS
     Dosage: 1 DOSE DAILY ORAL
     Route: 048
     Dates: start: 20121205, end: 20121209
  2. AZITHROMYCIN [Suspect]
     Indication: UPPER RESPIRATORY TRACT INFECTION
     Dosage: 1 DOSE DAILY ORAL
     Route: 048
     Dates: start: 20121205, end: 20121209

REACTIONS (1)
  - VIIth nerve paralysis [None]
